FAERS Safety Report 7197494-8 (Version None)
Quarter: 2010Q4

REPORT INFORMATION
  Report Type: 
  Country: None (occurrence: None)
  Receive Date: 20101213
  Receipt Date: 20101203
  Transmission Date: 20110411
  Serious: Yes (Other)
  Sender: FDA-Public Use
  Company Number: 2010PV000101

PATIENT
  Sex: Male

DRUGS (4)
  1. DEPOCYT [Suspect]
     Indication: MEDULLOBLASTOMA RECURRENT
     Dosage: 35 MG;QOW;INTH
     Route: 037
  2. ETOPOSIDE [Suspect]
  3. SANDOSTATIN /00821001/ [Concomitant]
  4. DEXAMETHASONE [Concomitant]

REACTIONS (3)
  - MALIGNANT NEOPLASM PROGRESSION [None]
  - MEDULLOBLASTOMA [None]
  - NEUROLOGICAL SYMPTOM [None]
